FAERS Safety Report 18948470 (Version 1)
Quarter: 2021Q1

REPORT INFORMATION
  Report Type: Spontaneous
  Country: US (occurrence: US)
  Receive Date: 20210226
  Receipt Date: 20210226
  Transmission Date: 20210420
  Serious: No
  Sender: FDA-Public Use
  Company Number: US-ROCHE-2550397

PATIENT
  Age: 32 Year
  Sex: Female

DRUGS (4)
  1. DAPSONE. [Concomitant]
     Active Substance: DAPSONE
     Route: 065
  2. XOLAIR [Suspect]
     Active Substance: OMALIZUMAB
     Indication: URTICARIA
     Route: 058
  3. PREDNISONE. [Concomitant]
     Active Substance: PREDNISONE
     Route: 065
  4. DAPSONE. [Concomitant]
     Active Substance: DAPSONE
     Route: 065

REACTIONS (3)
  - Therapeutic response decreased [Unknown]
  - Urticaria [Not Recovered/Not Resolved]
  - Product quality issue [Unknown]
